FAERS Safety Report 10666553 (Version 1)
Quarter: 2014Q4

REPORT INFORMATION
  Report Type: Report from Study
  Country: PL (occurrence: PL)
  Receive Date: 20141221
  Receipt Date: 20141221
  Transmission Date: 20150529
  Serious: Yes (Life-Threatening, Other)
  Sender: FDA-Public Use
  Company Number: PL-GLAXOSMITHKLINE INC.-PL2014GSK036809

PATIENT
  Age: 66 Year
  Sex: Male
  Weight: 83 kg

DRUGS (5)
  1. CYTARABINE. [Suspect]
     Active Substance: CYTARABINE
     Indication: DIFFUSE LARGE B-CELL LYMPHOMA
     Dosage: 1019 MG, UNK
     Route: 042
     Dates: start: 20141031
  2. OFATUMUMAB [Suspect]
     Active Substance: OFATUMUMAB
     Indication: DIFFUSE LARGE B-CELL LYMPHOMA
     Dosage: 1000 MG, UNK
     Route: 042
     Dates: start: 20141031
  3. IFOSFAMIDE. [Suspect]
     Active Substance: IFOSFAMIDE
     Indication: DIFFUSE LARGE B-CELL LYMPHOMA
     Dosage: 2038 MG, UNK
     Route: 042
     Dates: start: 20141031
  4. ETOPOSIDE. [Suspect]
     Active Substance: ETOPOSIDE
     Indication: DIFFUSE LARGE B-CELL LYMPHOMA
     Dosage: 122 MG, UNK
     Route: 042
     Dates: start: 20141031
  5. MESNA. [Suspect]
     Active Substance: MESNA
     Indication: DIFFUSE LARGE B-CELL LYMPHOMA
     Dosage: 1631 MG, UNK
     Route: 042
     Dates: start: 20141031

REACTIONS (1)
  - Sepsis [Recovered/Resolved]

NARRATIVE: CASE EVENT DATE: 20141110
